FAERS Safety Report 12459938 (Version 2)
Quarter: 2016Q2

REPORT INFORMATION
  Report Type: Spontaneous
  Country: JP (occurrence: JP)
  Receive Date: 20160613
  Receipt Date: 20160617
  Transmission Date: 20160815
  Serious: Yes (Hospitalization)
  Sender: FDA-Public Use
  Company Number: PHJP2016JP015389

PATIENT
  Age: 68 Year
  Sex: Female

DRUGS (3)
  1. OCTREOTIDE. [Suspect]
     Active Substance: OCTREOTIDE
     Indication: GASTRINOMA
     Dosage: UNK
     Route: 065
  2. SUNITINIB [Concomitant]
     Active Substance: SUNITINIB
     Indication: GASTRINOMA
     Dosage: 25 MG, QD
     Route: 065
  3. EVEROLIMUS [Suspect]
     Active Substance: EVEROLIMUS
     Indication: GASTRINOMA
     Dosage: 10 MG, QD
     Route: 048
     Dates: start: 201112

REACTIONS (4)
  - Pyrexia [Recovering/Resolving]
  - Febrile neutropenia [Recovering/Resolving]
  - Malaise [Unknown]
  - Hepatic function abnormal [Unknown]
